FAERS Safety Report 5706629-2 (Version None)
Quarter: 2008Q2

REPORT INFORMATION
  Report Type: 
  Country: None (occurrence: None)
  Receive Date: 20080414
  Receipt Date: 20080407
  Transmission Date: 20081010
  Serious: Yes (Death)
  Sender: FDA-Public Use
  Company Number: 2008AL002146

PATIENT
  Age: 10 Year
  Sex: Male

DRUGS (1)
  1. BACLOFEN [Suspect]
     Indication: MUSCLE SPASTICITY
     Dosage: 750 UG;QD;INTH
     Route: 037

REACTIONS (4)
  - DISEASE PROGRESSION [None]
  - DYSTONIA [None]
  - LOWER RESPIRATORY TRACT INFECTION [None]
  - SEPSIS [None]
